FAERS Safety Report 7834618-0 (Version None)
Quarter: 2011Q4

REPORT INFORMATION
  Report Type: 
  Country: None (occurrence: None)
  Receive Date: 20111024
  Receipt Date: 20111014
  Transmission Date: 20120403
  Serious: Yes (Other)
  Sender: FDA-Public Use
  Company Number: BR-SANOFI-AVENTIS-2011SA068000

PATIENT
  Age: 33 Year
  Sex: Female
  Weight: 47.5 kg

DRUGS (5)
  1. AUTOPEN 24 [Concomitant]
  2. LANTUS [Suspect]
     Route: 058
  3. LANTUS [Suspect]
     Route: 058
  4. ALPRAZOLAM [Concomitant]
     Route: 048
  5. HUMALOG [Concomitant]
     Dosage: ACCORDING TO GLYCEMIA
     Route: 058

REACTIONS (6)
  - EYE MOVEMENT DISORDER [None]
  - HYPOGLYCAEMIA [None]
  - FEELING OF BODY TEMPERATURE CHANGE [None]
  - DIZZINESS [None]
  - BLOOD PRESSURE FLUCTUATION [None]
  - SYNCOPE [None]
